FAERS Safety Report 5417825-6 (Version None)
Quarter: 2007Q3

REPORT INFORMATION
  Report Type: 
  Country: None (occurrence: None)
  Receive Date: 20070817
  Receipt Date: 20070813
  Transmission Date: 20080115
  Serious: Yes (Other)
  Sender: FDA-Public Use
  Company Number: PHEH2007US11092

PATIENT
  Sex: Female

DRUGS (2)
  1. DIOVAN [Suspect]
     Dosage: UNK, UNK
  2. DIOVAN HCT [Suspect]
     Dosage: 160 MG VAL/12.5MG HCT, UNK

REACTIONS (2)
  - ALOPECIA [None]
  - DEPRESSION [None]
